FAERS Safety Report 7818323-2 (Version None)
Quarter: 2011Q4

REPORT INFORMATION
  Report Type: 
  Country: None (occurrence: None)
  Receive Date: 20111017
  Receipt Date: 20111011
  Transmission Date: 20120403
  Serious: No
  Sender: FDA-Public Use
  Company Number: US-PFIZER INC-2011221765

PATIENT
  Sex: Female
  Weight: 49.887 kg

DRUGS (1)
  1. XALATAN [Suspect]
     Indication: OPEN ANGLE GLAUCOMA
     Dosage: 1 GTT, 1X/DAY (QHS)
     Route: 047
     Dates: start: 20110114

REACTIONS (1)
  - PUPILLARY DISORDER [None]
